FAERS Safety Report 11532915 (Version 2)
Quarter: 2015Q4

REPORT INFORMATION
  Report Type: Spontaneous
  Country: US (occurrence: US)
  Receive Date: 20150921
  Receipt Date: 20151026
  Transmission Date: 20160304
  Serious: Yes (Other)
  Sender: FDA-Public Use
  Company Number: US-PFIZER INC-2015305146

PATIENT
  Age: 67 Year
  Sex: Female
  Weight: 73 kg

DRUGS (1)
  1. LYRICA [Suspect]
     Active Substance: PREGABALIN
     Indication: PAIN
     Dosage: 75 MG, 2X/DAY
     Route: 048

REACTIONS (3)
  - Neovascular age-related macular degeneration [Unknown]
  - Visual acuity reduced [Not Recovered/Not Resolved]
  - Dry age-related macular degeneration [Unknown]

NARRATIVE: CASE EVENT DATE: 2009
